FAERS Safety Report 4602354-X (Version None)
Quarter: 2005Q2

REPORT INFORMATION
  Report Type: 
  Country: None (occurrence: None)
  Receive Date: 20050223
  Receipt Date: 20041025
  Transmission Date: 20051028
  Serious: No
  Sender: FDA-Public Use
  Company Number: PHEH2004US11041

PATIENT
  Age: 63 Year
  Sex: Female

DRUGS (5)
  1. ZELNORM [Suspect]
     Indication: IRRITABLE BOWEL SYNDROME
     Dosage: 6 MG, ONCE/SINGLE, ORAL
     Route: 048
     Dates: start: 20041013, end: 20041013
  2. WELLBUTRIN SR [Concomitant]
  3. PRIMIDONE [Concomitant]
  4. CELEBREX [Concomitant]
  5. COMPAZINE (PROCHLORPERAZINE EDISYLATE) SUPPOSITORY [Concomitant]

REACTIONS (1)
  - FAECES DISCOLOURED [None]
